FAERS Safety Report 8484335-1 (Version None)
Quarter: 2012Q3

REPORT INFORMATION
  Report Type: 
  Country: None (occurrence: None)
  Receive Date: 20120703
  Receipt Date: 20120625
  Transmission Date: 20120928
  Serious: Yes (Other)
  Sender: FDA-Public Use
  Company Number: PHHO2005ES19515

PATIENT
  Sex: Male
  Weight: 87.5 kg

DRUGS (3)
  1. ESIDRIX [Suspect]
     Indication: ESSENTIAL HYPERTENSION
     Dosage: 25 MG, QD
     Route: 048
     Dates: start: 20050920, end: 20051215
  2. AMLODIPINE [Suspect]
     Indication: ESSENTIAL HYPERTENSION
     Dosage: 10 MG, QD
     Route: 048
     Dates: start: 20051018, end: 20051215
  3. DAIVOBET [Concomitant]

REACTIONS (1)
  - OEDEMA PERIPHERAL [None]
